FAERS Safety Report 18250415 (Version 1)
Quarter: 2020Q3

REPORT INFORMATION
  Report Type: Spontaneous
  Country: RU (occurrence: RU)
  Receive Date: 20200910
  Receipt Date: 20200910
  Transmission Date: 20201103
  Serious: Yes (Life-Threatening, Other)
  Sender: FDA-Public Use
  Company Number: RU-LUPIN PHARMACEUTICALS INC.-2020-05642

PATIENT
  Age: 44 Year
  Sex: Male

DRUGS (11)
  1. METHYLPREDNISOLONE. [Suspect]
     Active Substance: METHYLPREDNISOLONE
     Indication: COVID-19 PNEUMONIA
     Dosage: 1000 MILLIGRAM, PULSE THERAPY
     Route: 065
  2. AZITHROMYCIN ANHYDROUS. [Suspect]
     Active Substance: AZITHROMYCIN ANHYDROUS
     Indication: COVID-19 PNEUMONIA
     Dosage: UNK
     Route: 065
  3. COLCHICINE. [Concomitant]
     Active Substance: COLCHICINE
     Indication: ANTIINFLAMMATORY THERAPY
     Dosage: 1 MILLIGRAM, UNK
     Route: 065
  4. SPIRONOLACTONE. [Concomitant]
     Active Substance: SPIRONOLACTONE
     Indication: PRODUCT USED FOR UNKNOWN INDICATION
     Dosage: 50 MILLIGRAM, UNK
     Route: 065
  5. COLCHICINE. [Concomitant]
     Active Substance: COLCHICINE
     Dosage: 0.5 MILLIGRAM, UNK
     Route: 065
  6. HYDROXYCHLOROQUINE [Suspect]
     Active Substance: HYDROXYCHLOROQUINE
     Indication: COVID-19 PNEUMONIA
     Dosage: UNK
     Route: 065
  7. BROMHEXINE [Suspect]
     Active Substance: BROMHEXINE
     Indication: COVID-19 PNEUMONIA
     Dosage: 8 MILLIGRAM, UNK
     Route: 065
  8. DEXAMETHASONE. [Suspect]
     Active Substance: DEXAMETHASONE
     Indication: COVID-19 PNEUMONIA
     Dosage: 8 MILLIGRAM, UNK
     Route: 065
  9. IMIDAZOLYL ETHANAMIDE PENTANDIOIC ACID [Suspect]
     Active Substance: INGAVIRIN
     Indication: COVID-19 PNEUMONIA
     Dosage: UNK
     Route: 065
  10. ENOXAPARIN SODIUM. [Concomitant]
     Active Substance: ENOXAPARIN SODIUM
     Dosage: 80 MILLIGRAM, UNK
     Route: 065
  11. ENOXAPARIN SODIUM. [Concomitant]
     Active Substance: ENOXAPARIN SODIUM
     Indication: ANTICOAGULANT THERAPY
     Dosage: 40 MILLIGRAM, UNK
     Route: 065

REACTIONS (4)
  - Off label use [Unknown]
  - Lymphocyte count increased [Recovering/Resolving]
  - Neutrophilia [Recovering/Resolving]
  - Fibrin D dimer increased [Recovering/Resolving]
